FAERS Safety Report 19463800 (Version 6)
Quarter: 2021Q3

REPORT INFORMATION
  Report Type: Report from Study
  Country: US (occurrence: US)
  Receive Date: 20210625
  Receipt Date: 20210927
  Transmission Date: 20211014
  Serious: Yes (Hospitalization)
  Sender: FDA-Public Use
  Company Number: NVSC2021US130939

PATIENT
  Sex: Male

DRUGS (2)
  1. ENTRESTO [Suspect]
     Active Substance: SACUBITRIL\VALSARTAN
     Indication: CARDIAC FAILURE CHRONIC
     Dosage: 50 MG, BID
     Route: 048
  2. ENTRESTO [Suspect]
     Active Substance: SACUBITRIL\VALSARTAN
     Route: 065

REACTIONS (10)
  - Weight increased [Unknown]
  - Bronchitis [Unknown]
  - Dyspnoea [Unknown]
  - Product dose omission issue [Unknown]
  - Cardiac disorder [Unknown]
  - Respiratory disorder [Unknown]
  - Decreased activity [Unknown]
  - Malaise [Unknown]
  - Speech disorder [Unknown]
  - Cough [Unknown]

NARRATIVE: CASE EVENT DATE: 2021
